FAERS Safety Report 10768651 (Version 2)
Quarter: 2015Q1

REPORT INFORMATION
  Report Type: Spontaneous
  Country: SE (occurrence: SE)
  Receive Date: 20150206
  Receipt Date: 20150213
  Transmission Date: 20150721
  Serious: Yes (Other)
  Sender: FDA-Public Use
  Company Number: SE-ASTRAZENECA-2015SE10196

PATIENT
  Age: 67 Year
  Sex: Male

DRUGS (14)
  1. NASONEX [Concomitant]
     Active Substance: MOMETASONE FUROATE
     Dosage: AS REQUIRED
  2. COCILLANA-ETYFIN [Concomitant]
     Active Substance: ETHYLMORPHINE HYDROCHLORIDE\HERBALS
     Dosage: AS REQUIRED
     Route: 048
  3. BETNOVATE [Concomitant]
     Active Substance: BETAMETHASONE
  4. ZOPIKLON PILUM [Concomitant]
  5. CRESTOR [Suspect]
     Active Substance: ROSUVASTATIN CALCIUM
     Route: 048
     Dates: start: 20121222, end: 20141205
  6. NOVORAPID [Concomitant]
     Active Substance: INSULIN ASPART
     Indication: DIABETES MELLITUS
     Dosage: 100 E/ML
  7. CANODERM [Concomitant]
  8. ALVEDON [Concomitant]
     Active Substance: ACETAMINOPHEN
  9. NOVOMIX [Concomitant]
     Active Substance: INSULIN ASPART
     Indication: DIABETES MELLITUS
     Dosage: 100 E/ML
  10. ALFUZOSIN [Concomitant]
     Active Substance: ALFUZOSIN
  11. OMEPRAZOL [Concomitant]
     Active Substance: OMEPRAZOLE
  12. BETNOVAT [Concomitant]
     Active Substance: BETAMETHASONE
     Dosage: AS REQUIRED
  13. METFORMIN MEDA [Concomitant]
  14. TROMBYL [Concomitant]
     Active Substance: ASPIRIN

REACTIONS (2)
  - Blood creatine phosphokinase increased [Recovered/Resolved]
  - Polyneuropathy [Recovered/Resolved]

NARRATIVE: CASE EVENT DATE: 2014
